FAERS Safety Report 6562153-9 (Version None)
Quarter: 2010Q1

REPORT INFORMATION
  Report Type: 
  Country: None (occurrence: None)
  Receive Date: 20100130
  Receipt Date: 20091228
  Transmission Date: 20100710
  Serious: No
  Sender: FDA-Public Use
  Company Number: US-ABBOTT-09P-163-0606025-00

PATIENT
  Sex: Male
  Weight: 99.88 kg

DRUGS (5)
  1. HUMIRA [Suspect]
     Indication: CROHN'S DISEASE
     Dosage: 160MG LOADING DOSE
     Dates: start: 20070601, end: 20070601
  2. HUMIRA [Suspect]
     Dosage: 80MG; DAY 15
  3. HUMIRA [Suspect]
     Route: 058
  4. PREDNISONE [Concomitant]
     Indication: DRUG USE FOR UNKNOWN INDICATION
     Route: 048
  5. FLAGYL [Concomitant]
     Indication: DIARRHOEA
     Dosage: 4 TIMES DAILY AS NEEDED

REACTIONS (2)
  - FATIGUE [None]
  - INJECTION SITE PAIN [None]
